FAERS Safety Report 16233871 (Version 1)
Quarter: 2019Q2

REPORT INFORMATION
  Report Type: Spontaneous
  Country: US (occurrence: US)
  Receive Date: 20190424
  Receipt Date: 20190424
  Transmission Date: 20190711
  Serious: No
  Sender: FDA-Public Use
  Company Number: US-TEVA-2019-US-1032737

PATIENT
  Sex: Male

DRUGS (1)
  1. TEVA METHOTREXATE INJECTION [Suspect]
     Active Substance: METHOTREXATE
     Indication: RHEUMATOID ARTHRITIS
     Dosage: DOSE STRENGTH:  25 MG/ML, 250 MG AND 0.4ML WEEKLY
     Route: 058
     Dates: start: 2016

REACTIONS (4)
  - Product prescribing error [Unknown]
  - Incorrect route of product administration [Unknown]
  - White blood cell count decreased [Unknown]
  - Wrong technique in device usage process [Unknown]

NARRATIVE: CASE EVENT DATE: 2016
